FAERS Safety Report 7964438-8 (Version None)
Quarter: 2011Q4

REPORT INFORMATION
  Report Type: 
  Country: None (occurrence: None)
  Receive Date: 20111206
  Receipt Date: 20111123
  Transmission Date: 20120403
  Serious: Yes (Hospitalization, Other)
  Sender: FDA-Public Use
  Company Number: 2011MA016795

PATIENT
  Age: 25 Year
  Sex: Female

DRUGS (3)
  1. BENZODIAZEPINES (N0 PREF. NAME) [Suspect]
  2. ALCOHOL (ETHANOL) [Suspect]
  3. METHYLPHENIDATE HYDROCHLORIDE [Suspect]
     Dosage: 320 MG;1X

REACTIONS (5)
  - TOXICITY TO VARIOUS AGENTS [None]
  - AGITATION [None]
  - INCORRECT DOSE ADMINISTERED [None]
  - DRUG ABUSE [None]
  - PETIT MAL EPILEPSY [None]
